FAERS Safety Report 8849413 (Version 1)
Quarter: 2012Q4

REPORT INFORMATION
  Report Type: Spontaneous
  Country: US (occurrence: None)
  Receive Date: 20121018
  Receipt Date: 20121018
  Transmission Date: 20130627
  Serious: Yes (Life-Threatening, Hospitalization)
  Sender: FDA-Public Use
  Company Number: None

PATIENT
  Age: 70 Year
  Sex: Male
  Weight: 98.43 kg

DRUGS (1)
  1. XARELTO [Suspect]
     Indication: ATRIAL FIBRILLATION
     Dosage: 1 po qd
     Route: 048
     Dates: start: 20120807, end: 20120825

REACTIONS (5)
  - Dyspnoea [None]
  - Nausea [None]
  - Fatigue [None]
  - Pericardial effusion [None]
  - Haemoglobin decreased [None]
